FAERS Safety Report 14770511 (Version 1)
Quarter: 2018Q2

REPORT INFORMATION
  Report Type: Spontaneous
  Country: US (occurrence: US)
  Receive Date: 20180417
  Receipt Date: 20180417
  Transmission Date: 20180711
  Serious: No
  Sender: FDA-Public Use
  Company Number: US-AMNEAL PHARMACEUTICALS-2018AMN00006

PATIENT
  Age: 83 Year
  Sex: Female
  Weight: 47.62 kg

DRUGS (3)
  1. BUPRENORPHINE AND NALOXONE [Suspect]
     Active Substance: BUPRENORPHINE\NALOXONE
     Indication: PAIN
     Dosage: 2 TABLETS (1 AT NIGHT, 1 ON NEXT DAY)
     Route: 060
     Dates: start: 20171222, end: 20171223
  2. ATORVASTATIN [Concomitant]
     Active Substance: ATORVASTATIN
     Dosage: UNK
     Route: 065
  3. FISH OIL [Concomitant]
     Active Substance: FISH OIL
     Dosage: UNK
     Route: 065

REACTIONS (9)
  - Dyspnoea [Recovered/Resolved]
  - Hyperhidrosis [Recovered/Resolved]
  - Product taste abnormal [Recovered/Resolved]
  - Heart rate increased [Recovered/Resolved]
  - Nervousness [Recovered/Resolved]
  - Anxiety [Recovered/Resolved]
  - Drug ineffective [Recovered/Resolved]
  - Product solubility abnormal [Recovered/Resolved]
  - Nausea [Recovered/Resolved]

NARRATIVE: CASE EVENT DATE: 20171222
